FAERS Safety Report 24325737 (Version 1)
Quarter: 2024Q3

REPORT INFORMATION
  Report Type: Spontaneous
  Country: AU (occurrence: AU)
  Receive Date: 20240917
  Receipt Date: 20240917
  Transmission Date: 20241016
  Serious: Yes (Hospitalization, Other)
  Sender: NOVO NORDISK
  Company Number: None

PATIENT
  Age: 57 Year
  Sex: Male

DRUGS (1)
  1. OZEMPIC [Suspect]
     Active Substance: SEMAGLUTIDE
     Indication: Weight control
     Dosage: UNK

REACTIONS (4)
  - Pancreatitis necrotising [Not Recovered/Not Resolved]
  - Acute kidney injury [Unknown]
  - Delirium [Unknown]
  - Product use in unapproved indication [Unknown]

NARRATIVE: CASE EVENT DATE: 20231030
